FAERS Safety Report 9889288 (Version 1)
Quarter: 2014Q1

REPORT INFORMATION
  Report Type: Spontaneous
  Country: US (occurrence: US)
  Receive Date: 20140211
  Receipt Date: 20140211
  Transmission Date: 20141002
  Serious: No
  Sender: FDA-Public Use
  Company Number: US-GILEAD-2012-0050968

PATIENT
  Sex: Male

DRUGS (2)
  1. COMPLERA [Suspect]
     Indication: PRODUCT USED FOR UNKNOWN INDICATION
  2. ATRIPLA [Suspect]
     Indication: PRODUCT USED FOR UNKNOWN INDICATION
     Dosage: UNK
     Dates: start: 201107, end: 201108

REACTIONS (2)
  - Abnormal dreams [Unknown]
  - Fatigue [Unknown]
